FAERS Safety Report 15901092 (Version 1)
Quarter: 2019Q1

REPORT INFORMATION
  Report Type: Spontaneous
  Country: US (occurrence: US)
  Receive Date: 20190110
  Receipt Date: 20190110
  Transmission Date: 20190417
  Serious: Yes (Hospitalization)
  Sender: FDA-Public Use
  Company Number: None

PATIENT
  Sex: Male

DRUGS (8)
  1. XELJANZ [Suspect]
     Active Substance: TOFACITINIB CITRATE
     Indication: RHEUMATOID ARTHRITIS
     Route: 048
     Dates: start: 20161223
  2. BCOMPLEX [Concomitant]
  3. PREDNISONE. [Concomitant]
     Active Substance: PREDNISONE
  4. OMEPRAZOLE. [Concomitant]
     Active Substance: OMEPRAZOLE
  5. FOLIC ACID. [Concomitant]
     Active Substance: FOLIC ACID
  6. POTASSIUM [Concomitant]
     Active Substance: POTASSIUM
  7. METORPOLOL [Concomitant]
     Active Substance: METOPROLOL
  8. LYRICA [Concomitant]
     Active Substance: PREGABALIN

REACTIONS (1)
  - Ill-defined disorder [None]
